FAERS Safety Report 20866929 (Version 1)
Quarter: 2022Q2

REPORT INFORMATION
  Report Type: Spontaneous
  Country: US (occurrence: US)
  Receive Date: 20220524
  Receipt Date: 20220524
  Transmission Date: 20220721
  Serious: No
  Sender: FDA-Public Use
  Company Number: US-PFIZER INC-2019399887

PATIENT
  Age: 67 Year
  Sex: Female

DRUGS (1)
  1. XELJANZ XR [Suspect]
     Active Substance: TOFACITINIB CITRATE
     Dosage: 11 MG
     Dates: start: 20180301, end: 20190912

REACTIONS (5)
  - Neck pain [Recovering/Resolving]
  - Pain in extremity [Unknown]
  - Limb discomfort [Unknown]
  - Insomnia [Unknown]
  - Headache [Unknown]
